FAERS Safety Report 5407351-2 (Version None)
Quarter: 2007Q3

REPORT INFORMATION
  Report Type: 
  Country: None (occurrence: None)
  Receive Date: 20070802
  Receipt Date: 20070726
  Transmission Date: 20080115
  Serious: Yes (Other)
  Sender: FDA-Public Use
  Company Number: 2007SP014192

PATIENT
  Age: 2 Year
  Sex: Male
  Weight: 10.4 kg

DRUGS (2)
  1. INTRON A [Suspect]
     Indication: HAEMANGIOMA
     Dosage: 0.9 MIU; SC; 1.2 MIU; SC
     Route: 058
     Dates: start: 20070302, end: 20070611
  2. INTRON A [Suspect]
     Indication: HAEMANGIOMA
     Dosage: 0.9 MIU; SC; 1.2 MIU; SC
     Route: 058
     Dates: start: 20070613, end: 20070615

REACTIONS (3)
  - FEBRILE CONVULSION [None]
  - HYPERTHERMIA [None]
  - TREATMENT FAILURE [None]
